FAERS Safety Report 21223171 (Version 5)
Quarter: 2022Q3

REPORT INFORMATION
  Report Type: Spontaneous
  Country: US (occurrence: US)
  Receive Date: 20220817
  Receipt Date: 20220913
  Transmission Date: 20221027
  Serious: No
  Sender: FDA-Public Use
  Company Number: US-PFIZER INC-202201060152

PATIENT
  Age: 66 Year
  Sex: Female
  Weight: 68.49 kg

DRUGS (7)
  1. PAXLOVID [Suspect]
     Active Substance: NIRMATRELVIR\RITONAVIR
     Indication: COVID-19 treatment
     Dosage: [PF-07321332 300 MG]/[RITONAVIR 100 MG], TWICE A DAY
     Dates: start: 20220812, end: 20220816
  2. PREBIOTICS NOS [Concomitant]
     Dosage: UNK, DAILY
  3. VITAMIN D3 K2 [Concomitant]
     Dosage: UNK, DAILY
  4. FISH OIL [Concomitant]
     Active Substance: FISH OIL
     Dosage: UNK, DAILY
  5. NIACINAMIDE [Concomitant]
     Active Substance: NIACINAMIDE
     Dosage: 500 MG, DAILY
  6. VITAMIN C COMPLEX [ASCORBIC ACID;BIOFLAVONOIDS NOS;HESPERIDIN COMPLEX; [Concomitant]
     Dosage: UNK, DAILY
  7. MAGNESIUM [Concomitant]
     Active Substance: MAGNESIUM
     Dosage: UNK, DAILY

REACTIONS (10)
  - Dysgeusia [Recovered/Resolved]
  - Abdominal discomfort [Recovered/Resolved]
  - Nausea [Recovered/Resolved]
  - Anxiety [Recovered/Resolved]
  - Nervousness [Recovered/Resolved]
  - Pollakiuria [Recovered/Resolved]
  - Restless legs syndrome [Recovered/Resolved]
  - Sleep disorder [Recovered/Resolved]
  - Malaise [Recovered/Resolved]
  - Therapeutic product effect incomplete [Unknown]

NARRATIVE: CASE EVENT DATE: 20220801
